FAERS Safety Report 6575649-0 (Version None)
Quarter: 2010Q1

REPORT INFORMATION
  Report Type: 
  Country: None (occurrence: None)
  Receive Date: 20100202
  Receipt Date: 20100126
  Transmission Date: 20100710
  Serious: Yes (Hospitalization, Other)
  Sender: FDA-Public Use
  Company Number: 10GB001252

PATIENT
  Age: 35 Year
  Sex: Female

DRUGS (8)
  1. PAROXETINE HCL [Suspect]
     Indication: DEPRESSION
     Dosage: 10 MG, QD, ORAL; 20 MG, QD, ORAL
     Route: 048
     Dates: start: 20030331, end: 20030430
  2. PAROXETINE HCL [Suspect]
     Indication: DEPRESSION
     Dosage: 10 MG, QD, ORAL; 20 MG, QD, ORAL
     Route: 048
     Dates: start: 20030430, end: 20030501
  3. PAROXETINE HCL [Suspect]
     Indication: DEPRESSION
     Dosage: 10 MG, QD, ORAL; 20 MG, QD, ORAL
     Route: 048
     Dates: start: 20030501, end: 20040827
  4. LITHIUM CARBONATE [Suspect]
     Indication: DRUG USE FOR UNKNOWN INDICATION
  5. ZOPICLONE (ZOPICLONE) TABELT [Suspect]
     Indication: DRUG USE FOR UNKNOWN INDICATION
  6. LAMOTRIGINE [Concomitant]
  7. OLANZAPINE [Concomitant]
  8. TOPAMAX [Concomitant]

REACTIONS (4)
  - AGGRESSION [None]
  - MULTIPLE DRUG OVERDOSE INTENTIONAL [None]
  - SUICIDE ATTEMPT [None]
  - WITHDRAWAL SYNDROME [None]
